FAERS Safety Report 5070153-3 (Version None)
Quarter: 2006Q3

REPORT INFORMATION
  Report Type: 
  Country: None (occurrence: None)
  Receive Date: 20060802
  Receipt Date: 20060802
  Transmission Date: 20061208
  Serious: Yes (Hospitalization)
  Sender: FDA-Public Use
  Company Number: None

PATIENT
  Age: 93 Year
  Sex: Male
  Weight: 65 kg

DRUGS (8)
  1. DIGOXIN [Suspect]
     Indication: ATRIAL FIBRILLATION
     Dosage: 0.25 MG DAILY PO
     Route: 048
     Dates: start: 20060207, end: 20060214
  2. AMIODARONE 200 MG [Suspect]
     Indication: ATRIAL FIBRILLATION
     Dosage: 100 MG DAILY PO
     Route: 048
     Dates: end: 20060207
  3. ASPIRIN [Concomitant]
  4. FLOMAX [Concomitant]
  5. FUROSEMIDE [Concomitant]
  6. MIRAPEX [Concomitant]
  7. DIAZEPAM [Concomitant]
  8. VICODIN [Concomitant]

REACTIONS (5)
  - ASTHENIA [None]
  - BRADYCARDIA [None]
  - DRUG INTERACTION [None]
  - GAIT DISTURBANCE [None]
  - THERAPEUTIC AGENT TOXICITY [None]
